FAERS Safety Report 4944692-7 (Version None)
Quarter: 2006Q1

REPORT INFORMATION
  Report Type: 
  Country: None (occurrence: None)
  Receive Date: 20060315
  Receipt Date: 20050627
  Transmission Date: 20060701
  Serious: Yes (Hospitalization, Other)
  Sender: FDA-Public Use
  Company Number: GB-NOVOPROD-245187

PATIENT
  Sex: Male
  Weight: 63 kg

DRUGS (4)
  1. NOVOMIX? 30 FLEXPEN? [Suspect]
     Indication: DIABETES MELLITUS
     Dosage: 15 IU, BID
     Route: 058
     Dates: start: 20040914, end: 20050608
  2. VALPROATE SODIUM [Concomitant]
     Dosage: 500 MG, QD
     Route: 048
  3. METOCLOPRAMIDE [Concomitant]
  4. GAVISCON [Concomitant]

REACTIONS (1)
  - EPILEPSY [None]
